FAERS Safety Report 19372366 (Version 1)
Quarter: 2021Q2

REPORT INFORMATION
  Report Type: Spontaneous
  Country: US (occurrence: US)
  Receive Date: 20210604
  Receipt Date: 20210604
  Transmission Date: 20210717
  Serious: Yes (Hospitalization)
  Sender: FDA-Public Use
  Company Number: None

PATIENT
  Age: 39 Year
  Sex: Female
  Weight: 75.2 kg

DRUGS (11)
  1. FISH OIL [Concomitant]
     Active Substance: FISH OIL
  2. MELATONIN [Concomitant]
     Active Substance: MELATONIN
  3. KIRKLAND SIGNATURE ALLERCLEAR [Concomitant]
     Active Substance: LORATADINE
  4. CEPHALEXIN. [Concomitant]
     Active Substance: CEPHALEXIN
  5. HYDROCODONE?ACETAMINOPHEN [Concomitant]
     Active Substance: ACETAMINOPHEN\HYDROCODONE
  6. ONDANSETRON [Concomitant]
     Active Substance: ONDANSETRON
  7. VITAMIN D [Concomitant]
     Active Substance: VITAMIN D NOS
  8. EXEMESTANE. [Concomitant]
     Active Substance: EXEMESTANE
  9. LUPRON [Concomitant]
     Active Substance: LEUPROLIDE ACETATE
  10. ZOMETA [Concomitant]
     Active Substance: ZOLEDRONIC ACID
  11. ASPIRIN. [Suspect]
     Active Substance: ASPIRIN
     Dates: end: 20210505

REACTIONS (6)
  - Implant site cellulitis [None]
  - Dyspnoea [None]
  - Chest discomfort [None]
  - Implant site infection [None]
  - Mastitis [None]
  - Tachycardia [None]

NARRATIVE: CASE EVENT DATE: 20210528
